FAERS Safety Report 18308079 (Version 1)
Quarter: 2020Q3

REPORT INFORMATION
  Report Type: Spontaneous
  Country: US (occurrence: US)
  Receive Date: 20200924
  Receipt Date: 20200924
  Transmission Date: 20201103
  Serious: No
  Sender: FDA-Public Use
  Company Number: US-TEVA-2020-US-1830636

PATIENT
  Age: 19 Year
  Sex: Female

DRUGS (2)
  1. PIROXICAM. [Suspect]
     Active Substance: PIROXICAM
     Indication: TEMPOROMANDIBULAR JOINT SYNDROME
     Dosage: 10 MILLIGRAM DAILY; TOOK ONE IN ON A UNKNOWN DATE IN JUL?2020
     Route: 048
     Dates: start: 202007
  2. PIROXICAM. [Suspect]
     Active Substance: PIROXICAM
     Dosage: 10 MILLIGRAM DAILY;
     Route: 048
     Dates: start: 20200912, end: 20200914

REACTIONS (7)
  - Burning sensation [Unknown]
  - Tremor [Unknown]
  - Hypoaesthesia [Recovering/Resolving]
  - Inappropriate schedule of product administration [Unknown]
  - Dizziness [Unknown]
  - Swelling face [Unknown]
  - Product use in unapproved indication [Unknown]

NARRATIVE: CASE EVENT DATE: 202007
